FAERS Safety Report 17866294 (Version 2)
Quarter: 2020Q2

REPORT INFORMATION
  Report Type: Spontaneous
  Country: KR (occurrence: KR)
  Receive Date: 20200605
  Receipt Date: 20200618
  Transmission Date: 20200714
  Serious: Yes (Death)
  Sender: FDA-Public Use
  Company Number: KR-BAXTER-2020BAX011125

PATIENT
  Age: 36 Year
  Sex: Male

DRUGS (1)
  1. BAXTER METRONIDAZOLE INJ. 500MG [Suspect]
     Active Substance: METRONIDAZOLE
     Indication: INFECTION
     Dosage: THREE TIMES DAILY FOR THREE MONTHS.
     Route: 065

REACTIONS (1)
  - Toxic encephalopathy [Fatal]
